FAERS Safety Report 5684853-5 (Version None)
Quarter: 2008Q1

REPORT INFORMATION
  Report Type: 
  Country: None (occurrence: None)
  Receive Date: 20080328
  Receipt Date: 19900809
  Transmission Date: 20080703
  Serious: Yes (Death)
  Sender: FDA-Public Use
  Company Number: CA-ROCHE-14559

PATIENT
  Age: 42 Year
  Sex: Male

DRUGS (4)
  1. CYTOVENE [Suspect]
     Route: 042
     Dates: start: 19890706
  2. CYTOVENE [Suspect]
     Dosage: DOSING: 5 DAYS PER WEEK
     Route: 042
     Dates: end: 19900119
  3. AEROSOLIZED PENTAMIDINE [Concomitant]
     Route: 055
  4. MYCOSTATIN [Concomitant]

REACTIONS (1)
  - DEATH [None]
